FAERS Safety Report 19400175 (Version 4)
Quarter: 2021Q3

REPORT INFORMATION
  Report Type: Spontaneous
  Country: JP (occurrence: JP)
  Receive Date: 20210610
  Receipt Date: 20210811
  Transmission Date: 20211014
  Serious: Yes (Disabling, Other)
  Sender: FDA-Public Use
  Company Number: JP-PFIZER INC-2021632541

PATIENT
  Age: 8 Decade
  Sex: Female

DRUGS (4)
  1. KOLBET [Suspect]
     Active Substance: IGURATIMOD
     Dosage: UNK
  2. CELECOX 200MG [Suspect]
     Active Substance: CELECOXIB
     Indication: RHEUMATOID ARTHRITIS
     Dosage: 200 MG, 2X/DAY IN THE MORNING AND THE EVENING
     Route: 048
     Dates: start: 20130809, end: 20160319
  3. METHOTREXATE SODIUM. [Suspect]
     Active Substance: METHOTREXATE SODIUM
     Indication: RHEUMATOID ARTHRITIS
     Dosage: UNK
     Dates: start: 201307, end: 20140117
  4. FAMOTIDINE NICHIIKO [Suspect]
     Active Substance: FAMOTIDINE
     Indication: GASTRIC ULCER
     Dosage: 20 MG, 2X/DAY IN THE MORNING AND THE EVENING
     Route: 048
     Dates: start: 20130809

REACTIONS (4)
  - Myelosuppression [Recovered/Resolved]
  - Bronchiectasis [Unknown]
  - Chronic kidney disease [Not Recovered/Not Resolved]
  - Interstitial lung disease [Unknown]

NARRATIVE: CASE EVENT DATE: 20140801
